FAERS Safety Report 22539001 (Version 1)
Quarter: 2023Q2

REPORT INFORMATION
  Report Type: Spontaneous
  Country: CN (occurrence: None)
  Receive Date: 20230609
  Receipt Date: 20230609
  Transmission Date: 20230722
  Serious: Yes (Other)
  Sender: FDA-Public Use
  Company Number: CN-ROCHE-3146469

PATIENT
  Age: 61 Year
  Sex: Male

DRUGS (28)
  1. MABTHERA [Suspect]
     Active Substance: RITUXIMAB
     Indication: Diffuse large B-cell lymphoma
     Dosage: 21 FEB 2022, 24 MAR 2022, 21 APR 2022, 29 MAY 2022, D0
     Route: 042
     Dates: start: 20220221
  2. OBINUTUZUMAB [Suspect]
     Active Substance: OBINUTUZUMAB
     Indication: Diffuse large B-cell lymphoma
     Dosage: ON DAY 1, 8, 15
     Route: 042
     Dates: start: 20220617
  3. OBINUTUZUMAB [Suspect]
     Active Substance: OBINUTUZUMAB
     Dosage: ON DAY 0
     Route: 042
     Dates: start: 20220707
  4. OBINUTUZUMAB [Suspect]
     Active Substance: OBINUTUZUMAB
     Route: 042
     Dates: start: 20220810
  5. OBINUTUZUMAB [Suspect]
     Active Substance: OBINUTUZUMAB
     Route: 042
     Dates: start: 20221012
  6. OBINUTUZUMAB [Suspect]
     Active Substance: OBINUTUZUMAB
     Dosage: D0
     Route: 042
     Dates: start: 20221103
  7. DEXAMETHASONE [Concomitant]
     Active Substance: DEXAMETHASONE
     Indication: Diffuse large B-cell lymphoma
     Dosage: PER DAY
     Route: 041
  8. DEXAMETHASONE [Concomitant]
     Active Substance: DEXAMETHASONE
     Dosage: D1-4
     Route: 041
     Dates: start: 20220707
  9. MANNITOL [Concomitant]
     Active Substance: MANNITOL
     Indication: Diffuse large B-cell lymphoma
     Route: 065
  10. METHOTREXATE [Concomitant]
     Active Substance: METHOTREXATE
     Indication: Diffuse large B-cell lymphoma
     Dosage: D1
     Dates: start: 20220221
  11. METHOTREXATE [Concomitant]
     Active Substance: METHOTREXATE
     Dosage: D1  03/NOV/2022
     Dates: start: 20220324
  12. METHOTREXATE [Concomitant]
     Active Substance: METHOTREXATE
     Dosage: 21/APR/2022, 19/MAY/2022, D1
     Dates: start: 20220421, end: 20220519
  13. CYTARABINE [Concomitant]
     Active Substance: CYTARABINE
     Indication: Diffuse large B-cell lymphoma
     Dosage: 21 FEB 2022, 24 MAR 2022, D2 TO D3
     Route: 065
  14. CYTARABINE [Concomitant]
     Active Substance: CYTARABINE
     Route: 065
     Dates: start: 20230104
  15. ORELABRUTINIB [Concomitant]
     Active Substance: ORELABRUTINIB
     Indication: Diffuse large B-cell lymphoma
     Dosage: 21 FEB 2022, 24 MAR 2022, PER DAY?21/APR/2022, 19/MAY/2022, 17/JUN/2022
     Route: 065
  16. ORELABRUTINIB [Concomitant]
     Active Substance: ORELABRUTINIB
     Dates: start: 20220421
  17. ORELABRUTINIB [Concomitant]
     Active Substance: ORELABRUTINIB
     Dates: start: 20220519
  18. THIOTEPA [Concomitant]
     Active Substance: THIOTEPA
     Indication: Diffuse large B-cell lymphoma
     Dosage: 21 APR 2022, 29 MAY 2022, D2
  19. THIOTEPA [Concomitant]
     Active Substance: THIOTEPA
     Dosage: D2
     Dates: start: 20221103
  20. THIOTEPA [Concomitant]
     Active Substance: THIOTEPA
     Dates: start: 20230104
  21. SELINEXOR [Concomitant]
     Active Substance: SELINEXOR
     Indication: Diffuse large B-cell lymphoma
     Dosage: NEXT 07/JUL/2022
     Route: 065
     Dates: start: 20220617
  22. LENALIDOMIDE [Concomitant]
     Active Substance: LENALIDOMIDE
     Indication: Diffuse large B-cell lymphoma
     Dosage: NEXT ON 07/JUL/2022
     Route: 065
     Dates: start: 20220617
  23. TEMOZOLOMIDE [Concomitant]
     Active Substance: TEMOZOLOMIDE
     Indication: Diffuse large B-cell lymphoma
     Dosage: ON DAY 1-4
     Route: 065
     Dates: start: 20220707
  24. ETOPOSIDE [Concomitant]
     Active Substance: ETOPOSIDE
     Indication: Diffuse large B-cell lymphoma
     Dosage: ON DAY 1-4
     Route: 065
     Dates: start: 20220707
  25. ETOPOSIDE [Concomitant]
     Active Substance: ETOPOSIDE
     Route: 065
     Dates: start: 20230104
  26. DOXORUBICIN HYDROCHLORIDE [Concomitant]
     Active Substance: DOXORUBICIN HYDROCHLORIDE
     Indication: Diffuse large B-cell lymphoma
     Dosage: ON DAY 1
     Route: 065
     Dates: start: 20220707
  27. MELPHALAN HYDROCHLORIDE [Concomitant]
     Active Substance: MELPHALAN HYDROCHLORIDE
     Indication: Diffuse large B-cell lymphoma
     Route: 065
     Dates: start: 20230104
  28. AXICABTAGENE CILOLEUCEL [Concomitant]
     Active Substance: AXICABTAGENE CILOLEUCEL
     Indication: Diffuse large B-cell lymphoma
     Dates: start: 20230509

REACTIONS (8)
  - Rash [Recovering/Resolving]
  - Nausea [Unknown]
  - Vomiting [Unknown]
  - Drug resistance [Unknown]
  - Off label use [Unknown]
  - Myelosuppression [Unknown]
  - Pneumonia [Unknown]
  - Herpes zoster [Unknown]

NARRATIVE: CASE EVENT DATE: 20220329
